FAERS Safety Report 8990575 (Version 1)
Quarter: 2012Q4

REPORT INFORMATION
  Report Type: Report from Study
  Country: NL (occurrence: NL)
  Receive Date: 20121228
  Receipt Date: 20121228
  Transmission Date: 20130627
  Serious: Yes (Hospitalization)
  Sender: FDA-Public Use
  Company Number: NL-BAXTER-2012BAX027719

PATIENT
  Age: 54 Year
  Sex: Male
  Weight: 88 kg

DRUGS (19)
  1. ENDOXAN I.V., POEDER VOOR OPLOSSING VOOR INJECTIE 200, 500, 1000 MG [Suspect]
     Indication: DIFFUSE LARGE B-CELL LYMPHOMA
     Route: 042
     Dates: start: 20101126
  2. ENDOXAN I.V., POEDER VOOR OPLOSSING VOOR INJECTIE 200, 500, 1000 MG [Suspect]
     Route: 042
     Dates: start: 20101231
  3. ENDOXAN I.V., POEDER VOOR OPLOSSING VOOR INJECTIE 200, 500, 1000 MG [Suspect]
     Route: 042
     Dates: start: 20110114
  4. RITUXIMAB [Suspect]
     Indication: DIFFUSE LARGE B-CELL LYMPHOMA
     Route: 042
     Dates: start: 20101126
  5. RITUXIMAB [Suspect]
     Route: 042
     Dates: start: 20110107
  6. RITUXIMAB [Suspect]
     Route: 042
     Dates: start: 20110114
  7. RITUXIMAB [Suspect]
     Route: 042
     Dates: start: 20110121
  8. PREDNISONE [Suspect]
     Indication: DIFFUSE LARGE B-CELL LYMPHOMA
     Route: 048
     Dates: start: 20101126
  9. PREDNISONE [Suspect]
     Route: 048
     Dates: start: 20101203
  10. PREDNISONE [Suspect]
     Route: 048
     Dates: start: 20110114
  11. DOXORUBICIN [Suspect]
     Indication: DIFFUSE LARGE B-CELL LYMPHOMA
     Route: 042
     Dates: start: 20101126
  12. DOXORUBICIN [Suspect]
     Route: 042
     Dates: start: 20101231
  13. DOXORUBICIN [Suspect]
     Route: 042
     Dates: start: 20110114
  14. VINCRISTINE [Suspect]
     Indication: DIFFUSE LARGE B-CELL LYMPHOMA
     Route: 042
     Dates: start: 20101127
  15. VINCRISTINE [Suspect]
     Route: 042
     Dates: start: 20101231
  16. VINCRISTINE [Suspect]
     Route: 042
     Dates: start: 20110114
  17. G-CSF [Suspect]
     Indication: DIFFUSE LARGE B-CELL LYMPHOMA
     Route: 058
     Dates: start: 20101127
  18. G-CSF [Suspect]
     Route: 058
     Dates: start: 20110101
  19. G-CSF [Suspect]
     Route: 058
     Dates: start: 20110115

REACTIONS (3)
  - Febrile neutropenia [Unknown]
  - Abdominal pain [Not Recovered/Not Resolved]
  - Diffuse large B-cell lymphoma refractory [Recovered/Resolved]
